FAERS Safety Report 11874926 (Version 1)
Quarter: 2015Q4

REPORT INFORMATION
  Report Type: Spontaneous
  Country: US (occurrence: None)
  Receive Date: 20151228
  Receipt Date: 20151228
  Transmission Date: 20160305
  Serious: Yes (Hospitalization)
  Sender: FDA-Public Use
  Company Number: None

PATIENT
  Age: 72 Year
  Sex: Male
  Weight: 82.8 kg

DRUGS (1)
  1. CISPLATIN. [Suspect]
     Active Substance: CISPLATIN
     Dates: end: 20151207

REACTIONS (4)
  - Pyrexia [None]
  - Platelet count decreased [None]
  - Chills [None]
  - Neutrophil count decreased [None]

NARRATIVE: CASE EVENT DATE: 20151222
